FAERS Safety Report 16485328 (Version 1)
Quarter: 2019Q2

REPORT INFORMATION
  Report Type: Spontaneous
  Country: US (occurrence: US)
  Receive Date: 20190517
  Receipt Date: 20190517
  Transmission Date: 20190711
  Serious: Yes (Hospitalization)
  Sender: FDA-Public Use
  Company Number: None

PATIENT
  Sex: Female

DRUGS (6)
  1. LISINOPRIL AND HYDROCHLOROTHIAZIDE [Concomitant]
     Active Substance: HYDROCHLOROTHIAZIDE\LISINOPRIL
  2. ESCITALOPRAM [Concomitant]
     Active Substance: ESCITALOPRAM OXALATE
  3. BRILINTA [Concomitant]
     Active Substance: TICAGRELOR
  4. BUPROPN HCL [Concomitant]
     Active Substance: BUPROPION HYDROCHLORIDE
  5. ROSUVASTATIN. [Concomitant]
     Active Substance: ROSUVASTATIN
  6. HUMIRA [Suspect]
     Active Substance: ADALIMUMAB
     Indication: PSORIASIS
     Route: 058
     Dates: start: 20160502

REACTIONS (1)
  - Myocardial infarction [None]
